FAERS Safety Report 18257790 (Version 2)
Quarter: 2020Q4

REPORT INFORMATION
  Report Type: Report from Study
  Country: JP (occurrence: JP)
  Receive Date: 20200911
  Receipt Date: 20201015
  Transmission Date: 20210113
  Serious: Yes (Death, Hospitalization, Other)
  Sender: FDA-Public Use
  Company Number: JP-AMGEN-JPNNI2020147810

PATIENT
  Age: 73 Year
  Sex: Female
  Weight: 39 kg

DRUGS (15)
  1. OLUMIANT [Concomitant]
     Active Substance: BARICITINIB
     Dosage: 4 MG, QD
     Route: 048
     Dates: start: 20190529, end: 20190710
  2. BREDININ [Concomitant]
     Active Substance: MIZORIBINE
     Dosage: 150 MG, QD
     Route: 048
     Dates: start: 20191106, end: 20200310
  3. AMENALIEF [Concomitant]
     Active Substance: AMENAMEVIR
     Dosage: UNK
     Route: 065
     Dates: start: 20190701, end: 20190707
  4. AZULFIDINE EN-TABS [Concomitant]
     Active Substance: SULFASALAZINE
     Indication: RHEUMATOID ARTHRITIS
     Dosage: 1 G, QD
     Route: 048
  5. OLUMIANT [Concomitant]
     Active Substance: BARICITINIB
     Dosage: 4 MG, QD
     Route: 048
     Dates: start: 20190904, end: 20191210
  6. AMENALIEF [Concomitant]
     Active Substance: AMENAMEVIR
     Dosage: UNK
     Route: 065
     Dates: start: 20190403, end: 20190409
  7. CELECOX [Concomitant]
     Active Substance: CELECOXIB
     Indication: RHEUMATOID ARTHRITIS
     Dosage: 200 MG, QD
     Route: 048
     Dates: start: 20181219, end: 20190327
  8. RABEPRAZOLE NA [Concomitant]
     Active Substance: RABEPRAZOLE SODIUM
     Dosage: UNK
     Route: 065
     Dates: start: 20181219, end: 20200311
  9. DENOSUMAB [Suspect]
     Active Substance: DENOSUMAB
     Indication: RHEUMATOID ARTHRITIS
     Dosage: 60 MILLIGRAM, Q6MO
     Route: 058
     Dates: start: 20180829, end: 20200311
  10. AZULFIDINE EN-TABS [Concomitant]
     Active Substance: SULFASALAZINE
     Dosage: 1 G, QD
     Route: 048
  11. BREDININ [Concomitant]
     Active Substance: MIZORIBINE
     Indication: RHEUMATOID ARTHRITIS
     Dosage: 200 MG, QD
     Route: 048
     Dates: end: 20191105
  12. OLUMIANT [Concomitant]
     Active Substance: BARICITINIB
     Indication: RHEUMATOID ARTHRITIS
     Dosage: 4 MG, QD
     Route: 048
     Dates: start: 20190116, end: 20190403
  13. OLUMIANT [Concomitant]
     Active Substance: BARICITINIB
     Dosage: 2 MG, QD
     Route: 048
     Dates: start: 20200611, end: 20200902
  14. BREDININ [Concomitant]
     Active Substance: MIZORIBINE
     Dosage: 100 MG, QD
     Route: 048
     Dates: start: 20200311
  15. OLUMIANT [Concomitant]
     Active Substance: BARICITINIB
     Dosage: 2 MG, QD
     Route: 048
     Dates: start: 20191211, end: 20200603

REACTIONS (4)
  - Ovarian cancer [Fatal]
  - Pyelitis [Not Recovered/Not Resolved]
  - Postrenal failure [Not Recovered/Not Resolved]
  - Metastases to liver [Fatal]

NARRATIVE: CASE EVENT DATE: 20200602
